FAERS Safety Report 20391121 (Version 2)
Quarter: 2022Q1

REPORT INFORMATION
  Report Type: Spontaneous
  Country: GB (occurrence: US)
  Receive Date: 20220128
  Receipt Date: 20220223
  Transmission Date: 20220424
  Serious: No
  Sender: FDA-Public Use
  Company Number: GB-009507513-2201GBR007336

PATIENT
  Age: 34 Year
  Sex: Female

DRUGS (1)
  1. TEMODAR [Suspect]
     Active Substance: TEMOZOLOMIDE
     Indication: Anaplastic astrocytoma
     Dosage: 6 WEEKS FOLLOWED BY 12 CYCLES
     Route: 048

REACTIONS (1)
  - Product use in unapproved indication [Unknown]
